FAERS Safety Report 18112108 (Version 4)
Quarter: 2023Q1

REPORT INFORMATION
  Report Type: Spontaneous
  Country: US (occurrence: US)
  Receive Date: 20200805
  Receipt Date: 20230228
  Transmission Date: 20230418
  Serious: Yes (Other)
  Sender: FDA-Public Use
  Company Number: US-GILEAD-2020-0487684

PATIENT
  Sex: Male
  Weight: 48.073 kg

DRUGS (29)
  1. VIREAD [Suspect]
     Active Substance: TENOFOVIR DISOPROXIL FUMARATE
     Indication: HIV infection
     Route: 048
  2. TRUVADA [Suspect]
     Active Substance: EMTRICITABINE\TENOFOVIR DISOPROXIL FUMARATE
     Indication: HIV infection
     Dosage: UNK
     Route: 048
  3. TRUVADA [Suspect]
     Active Substance: EMTRICITABINE\TENOFOVIR DISOPROXIL FUMARATE
     Dosage: UNK
     Route: 065
     Dates: start: 2004, end: 2006
  4. REYATAZ [Suspect]
     Active Substance: ATAZANAVIR SULFATE
     Indication: Product used for unknown indication
     Route: 065
  5. ACYCLOVIR [Concomitant]
     Active Substance: ACYCLOVIR
  6. MAALOX ANTACID [Concomitant]
     Active Substance: ALUMINUM HYDROXIDE\DIMETHICONE\MAGNESIUM HYDROXIDE
  7. BACTRIM [Concomitant]
     Active Substance: SULFAMETHOXAZOLE\TRIMETHOPRIM
  8. CARVEDILOL [Concomitant]
     Active Substance: CARVEDILOL
  9. EZETIMIBE [Concomitant]
     Active Substance: EZETIMIBE
  10. CRESTOR [Concomitant]
     Active Substance: ROSUVASTATIN CALCIUM
  11. FLOMAX [Concomitant]
     Active Substance: TAMSULOSIN HYDROCHLORIDE
  12. IBUPROFEN [Concomitant]
     Active Substance: IBUPROFEN
  13. PHENETICILLIN [Concomitant]
     Active Substance: PHENETICILLIN
  14. PREDNISOLONE [Concomitant]
     Active Substance: PREDNISOLONE
  15. ISENTRESS [Concomitant]
     Active Substance: RALTEGRAVIR POTASSIUM
  16. NORVIR [Concomitant]
     Active Substance: RITONAVIR
  17. PREZISTA [Concomitant]
     Active Substance: DARUNAVIR ETHANOLATE
  18. ZIAGEN [Concomitant]
     Active Substance: ABACAVIR SULFATE
  19. ZERIT [Concomitant]
     Active Substance: STAVUDINE
  20. FLUCONAZOLE [Concomitant]
     Active Substance: FLUCONAZOLE
  21. CLONAZEPAM [Concomitant]
     Active Substance: CLONAZEPAM
  22. LAMIVUDINE [Concomitant]
     Active Substance: LAMIVUDINE
  23. SUMATRIPTAN [Concomitant]
     Active Substance: SUMATRIPTAN
  24. TRAZODONE [Concomitant]
     Active Substance: TRAZODONE HYDROCHLORIDE
  25. CYCLOBENZAPRINE [Concomitant]
     Active Substance: CYCLOBENZAPRINE
  26. ERYTHROMYCIN [Concomitant]
     Active Substance: ERYTHROMYCIN
  27. TOBRAMYCIN DEXA OPHTH [Concomitant]
  28. OFLOXACIN [Concomitant]
     Active Substance: OFLOXACIN
  29. TYLENOL [Concomitant]
     Active Substance: ACETAMINOPHEN

REACTIONS (14)
  - Chronic kidney disease [Unknown]
  - Multiple fractures [Not Recovered/Not Resolved]
  - Hip arthroplasty [Not Recovered/Not Resolved]
  - Osteonecrosis [Unknown]
  - Hip fracture [Unknown]
  - Nephrocalcinosis [Unknown]
  - Fanconi syndrome acquired [Not Recovered/Not Resolved]
  - Bone loss [Unknown]
  - Bone density decreased [Unknown]
  - Tooth loss [Unknown]
  - Hypovitaminosis [Unknown]
  - Visual impairment [Unknown]
  - Emotional distress [Unknown]
  - Pain [Unknown]

NARRATIVE: CASE EVENT DATE: 20050101
